FAERS Safety Report 8599110-7 (Version None)
Quarter: 2012Q3

REPORT INFORMATION
  Report Type: 
  Country: None (occurrence: None)
  Receive Date: 20120816
  Receipt Date: 20120807
  Transmission Date: 20120928
  Serious: Yes (Other)
  Sender: FDA-Public Use
  Company Number: CHPA2012US017837

PATIENT
  Age: 60 Year
  Sex: Female

DRUGS (3)
  1. NODOZ [Suspect]
     Dosage: 1 DF, ONCE/SINGLE
     Route: 048
  2. NODOZ [Suspect]
     Indication: FATIGUE
     Dosage: 1 DF, ONCE/SINGLE
     Route: 048
     Dates: start: 20120501, end: 20120501
  3. ALLERGY MEDICATION [Concomitant]
     Indication: MULTIPLE ALLERGIES
     Dosage: UNK, Q3W

REACTIONS (2)
  - URTICARIA [None]
  - PRURITUS [None]
